FAERS Safety Report 21629688 (Version 1)
Quarter: 2022Q4

REPORT INFORMATION
  Report Type: Spontaneous
  Country: JP (occurrence: JP)
  Receive Date: 20221122
  Receipt Date: 20221122
  Transmission Date: 20230113
  Serious: Yes (Other)
  Sender: FDA-Public Use
  Company Number: JP-CHUGAI-2022043510

PATIENT
  Sex: Female

DRUGS (1)
  1. FARICIMAB [Suspect]
     Active Substance: FARICIMAB
     Indication: Neovascular age-related macular degeneration
     Dosage: 0.05 MILLILITER
     Route: 031
     Dates: start: 20220817, end: 20220817

REACTIONS (5)
  - Anterior chamber inflammation [Recovering/Resolving]
  - Iridocyclitis [Unknown]
  - Vitritis [Unknown]
  - Iritis [Unknown]
  - Eye inflammation [Unknown]

NARRATIVE: CASE EVENT DATE: 20220818
